FAERS Safety Report 6302031-3 (Version None)
Quarter: 2009Q3

REPORT INFORMATION
  Report Type: 
  Country: None (occurrence: None)
  Receive Date: 20090807
  Receipt Date: 20090729
  Transmission Date: 20100115
  Serious: Yes (Hospitalization)
  Sender: FDA-Public Use
  Company Number: DE-ABBOTT-09P-062-0588191-00

PATIENT
  Sex: Female
  Weight: 55 kg

DRUGS (8)
  1. HUMIRA [Suspect]
     Indication: CROHN'S DISEASE
     Dosage: 40 MG EOW
     Route: 058
     Dates: start: 20090513
  2. CORTISONE [Concomitant]
     Indication: CROHN'S DISEASE
     Dosage: UNK.
  3. POTASSIUM CHLORIDE [Concomitant]
     Indication: DRUG USE FOR UNKNOWN INDICATION
     Dosage: UNK.
  4. IRON [Concomitant]
     Indication: MINERAL SUPPLEMENTATION
     Dosage: UNK.
     Route: 048
  5. KALINOR RETARD [Concomitant]
     Indication: MINERAL SUPPLEMENTATION
     Dosage: 2-3 X 1
     Route: 048
     Dates: start: 20080101
  6. JODID [Concomitant]
     Indication: HYPOTHYROIDISM
     Route: 048
  7. ESTRADERM [Concomitant]
     Indication: HORMONE REPLACEMENT THERAPY
     Dosage: PER PLASTER
     Route: 061
     Dates: start: 19980101
  8. OMEPRAZOLE [Concomitant]
     Indication: PROPHYLAXIS AGAINST GASTROINTESTINAL ULCER
     Route: 048

REACTIONS (5)
  - BLOOD CREATININE INCREASED [None]
  - CYSTITIS [None]
  - HEADACHE [None]
  - HYDRONEPHROSIS [None]
  - VOMITING [None]
